FAERS Safety Report 25338769 (Version 1)
Quarter: 2025Q2

REPORT INFORMATION
  Report Type: Spontaneous
  Country: CN (occurrence: CN)
  Receive Date: 20250520
  Receipt Date: 20250520
  Transmission Date: 20250717
  Serious: Yes (Hospitalization)
  Sender: ABBVIE
  Company Number: CN-ABBVIE-6282918

PATIENT
  Age: 68 Year
  Sex: Male
  Weight: 55 kg

DRUGS (4)
  1. VENETOCLAX [Suspect]
     Active Substance: VENETOCLAX
     Indication: Acute leukaemia
     Dosage: 400 MILLIGRAM
     Route: 048
     Dates: start: 20250427, end: 20250504
  2. SODIUM CHLORIDE [Concomitant]
     Active Substance: SODIUM CHLORIDE
     Indication: Vehicle solution use
     Route: 041
     Dates: start: 20250428, end: 20250503
  3. DECITABINE [Suspect]
     Active Substance: DECITABINE
     Indication: Acute leukaemia
     Route: 041
     Dates: start: 20250502, end: 20250503
  4. DECITABINE [Suspect]
     Active Substance: DECITABINE
     Indication: Acute leukaemia
     Route: 041
     Dates: start: 20250428, end: 20250501

REACTIONS (3)
  - Myelosuppression [Recovering/Resolving]
  - Dyspnoea [Unknown]
  - Pyrexia [Unknown]

NARRATIVE: CASE EVENT DATE: 20250501
